FAERS Safety Report 5815198-8 (Version None)
Quarter: 2008Q3

REPORT INFORMATION
  Report Type: 
  Country: None (occurrence: None)
  Receive Date: 20080718
  Receipt Date: 20080714
  Transmission Date: 20090109
  Serious: No
  Sender: FDA-Public Use
  Company Number: BR-ROCHE-528789

PATIENT
  Sex: Female
  Weight: 4 kg

DRUGS (3)
  1. ROACUTAN [Suspect]
     Indication: ACNE
     Dosage: STRENGTH 10+20 MG CAPSULES. PATIENT RECEIVED 20 MG IN ONE DAY AND 40 MG FOLLOWING DAY
     Dates: start: 20070601, end: 20071024
  2. MINIMA [Suspect]
     Indication: CONTRACEPTION
     Dates: start: 20070901, end: 20071029
  3. DIANE-35 [Concomitant]
     Indication: CONTRACEPTION
     Dates: end: 20070801

REACTIONS (2)
  - NO ADVERSE EVENT [None]
  - NORMAL NEWBORN [None]
